FAERS Safety Report 10297003 (Version 1)
Quarter: 2014Q3

REPORT INFORMATION
  Report Type: Spontaneous
  Country: US (occurrence: US)
  Receive Date: 20140711
  Receipt Date: 20140711
  Transmission Date: 20150326
  Serious: Yes (Other)
  Sender: FDA-Public Use
  Company Number: US-MALLINCKRODT-T201402698

PATIENT
  Age: 49 Year
  Sex: Male

DRUGS (1)
  1. GABLOFEN [Suspect]
     Active Substance: BACLOFEN
     Indication: MUSCLE SPASTICITY
     Dosage: 300 MCG/DAY
     Route: 037

REACTIONS (3)
  - Muscle spasticity [Recovering/Resolving]
  - Incision site swelling [Unknown]
  - Implant site swelling [Unknown]

NARRATIVE: CASE EVENT DATE: 20140619
